FAERS Safety Report 10213572 (Version 1)
Quarter: 2014Q2

REPORT INFORMATION
  Report Type: Spontaneous
  Country: IT (occurrence: IT)
  Receive Date: 20140603
  Receipt Date: 20140603
  Transmission Date: 20141212
  Serious: Yes (Other)
  Sender: FDA-Public Use
  Company Number: IT-RANBAXY-2014RR-81784

PATIENT
  Age: 3 Year
  Sex: Female
  Weight: 17 kg

DRUGS (2)
  1. AMOXICILLIN [Suspect]
     Indication: TONSILLITIS
     Dosage: 18 ML, DAILY
     Route: 048
     Dates: start: 20140325, end: 20140326
  2. PARACETAMOL [Concomitant]
     Indication: PYREXIA
     Dosage: 900 MG, UNK
     Route: 065
     Dates: start: 20140325, end: 20140325

REACTIONS (1)
  - Erythema marginatum [Recovered/Resolved]
